FAERS Safety Report 8447967-2 (Version None)
Quarter: 2012Q2

REPORT INFORMATION
  Report Type: 
  Country: None (occurrence: None)
  Receive Date: 20120619
  Receipt Date: 20120615
  Transmission Date: 20120825
  Serious: Yes (Death)
  Sender: FDA-Public Use
  Company Number: PHEH2012US012115

PATIENT
  Sex: Male
  Weight: 81.6 kg

DRUGS (1)
  1. TASIGNA [Suspect]
     Indication: CHRONIC LEUKAEMIA
     Dosage: 400 MG, BID
     Route: 048
     Dates: start: 20110718

REACTIONS (1)
  - DEATH [None]
